FAERS Safety Report 5704962-1 (Version None)
Quarter: 2008Q2

REPORT INFORMATION
  Report Type: 
  Country: None (occurrence: None)
  Receive Date: 20080414
  Receipt Date: 20080407
  Transmission Date: 20081010
  Serious: Yes (Hospitalization)
  Sender: FDA-Public Use
  Company Number: JP-BOEHRINGER INGELHEIM GMBH, GERMANY-2008-BP-03834NB

PATIENT
  Sex: Male
  Weight: 48 kg

DRUGS (5)
  1. MICARDIS [Suspect]
     Indication: HYPERTENSION
     Route: 048
     Dates: start: 20061205
  2. MEVALOTIN [Suspect]
     Route: 048
  3. PROBUCOL [Suspect]
     Route: 048
  4. HERBESSER [Suspect]
     Indication: HYPERTENSION
     Route: 048
  5. ASPIRIN [Suspect]
     Route: 048

REACTIONS (2)
  - LOSS OF CONSCIOUSNESS [None]
  - MONOPLEGIA [None]
